FAERS Safety Report 8734377 (Version 2)
Quarter: 2015Q1

REPORT INFORMATION
  Report Type: Report from Study
  Country: US (occurrence: US)
  Receive Date: 20120821
  Receipt Date: 20150227
  Transmission Date: 20150721
  Serious: Yes (Death)
  Sender: FDA-Public Use
  Company Number: US-ROCHE-1096338

PATIENT
  Sex: Male
  Weight: 70 kg

DRUGS (9)
  1. 5 FLUORO URACIL [Concomitant]
     Active Substance: FLUOROURACIL
  2. GEMZAR [Concomitant]
     Active Substance: GEMCITABINE HYDROCHLORIDE
     Route: 042
  3. ALOXI [Concomitant]
     Active Substance: PALONOSETRON HYDROCHLORIDE
     Route: 065
  4. AVASTIN [Suspect]
     Active Substance: BEVACIZUMAB
     Route: 042
  5. ATROPINE [Concomitant]
     Active Substance: ATROPINE
     Route: 065
  6. DECADRON [Concomitant]
     Active Substance: DEXAMETHASONE
     Route: 065
  7. AVASTIN [Suspect]
     Active Substance: BEVACIZUMAB
     Indication: PANCREATIC CARCINOMA
     Route: 042
     Dates: start: 20040929
  8. LEUCOVORIN [Concomitant]
     Active Substance: LEUCOVORIN
  9. ARANESP [Concomitant]
     Active Substance: DARBEPOETIN ALFA
     Route: 058

REACTIONS (2)
  - Off label use [Unknown]
  - Death [Fatal]
